FAERS Safety Report 7020833-5 (Version None)
Quarter: 2010Q3

REPORT INFORMATION
  Report Type: 
  Country: None (occurrence: None)
  Receive Date: 20100929
  Receipt Date: 20100920
  Transmission Date: 20110219
  Serious: Yes (Hospitalization)
  Sender: FDA-Public Use
  Company Number: IN-PFIZER INC-2010117436

PATIENT
  Age: 65 Year
  Sex: Male

DRUGS (7)
  1. ATARAX [Suspect]
     Indication: SKIN DISORDER
     Dosage: 25 MG, 1X/DAY
     Route: 048
  2. ATARAX [Suspect]
  3. CEFOTAXIME SODIUM [Concomitant]
     Dosage: 1 G, 2X/DAY
     Route: 042
  4. AMOXICILLIN AND CLAVULANATE POTASSIUM [Concomitant]
     Dosage: 625 MG, 2X/DAY
     Route: 048
  5. METHOTREXATE [Concomitant]
  6. CICLOSPORIN [Concomitant]
  7. DEXONA [Concomitant]

REACTIONS (1)
  - RASH PUSTULAR [None]
